FAERS Safety Report 4488857-X (Version None)
Quarter: 2004Q4

REPORT INFORMATION
  Report Type: 
  Country: None (occurrence: None)
  Receive Date: 20041029
  Receipt Date: 20041007
  Transmission Date: 20050328
  Serious: Yes (Life-Threatening, Hospitalization, Disabling)
  Sender: FDA-Public Use
  Company Number: US-MERCK-0410USA01097

PATIENT
  Age: 36 Year
  Sex: Female

DRUGS (6)
  1. VIOXX [Suspect]
     Indication: CANCER PAIN
     Route: 048
     Dates: end: 20020601
  2. WELLBUTRIN [Concomitant]
     Route: 065
  3. PREVACID [Concomitant]
     Route: 065
  4. SINGULAIR [Concomitant]
     Route: 048
  5. ZYRTEC [Concomitant]
     Route: 065
  6. ADVAIR DISKUS 100/50 [Concomitant]
     Route: 065

REACTIONS (4)
  - CARDIAC DISORDER [None]
  - HEART INJURY [None]
  - HEART RATE INCREASED [None]
  - MALAISE [None]
